FAERS Safety Report 9797463 (Version 1)
Quarter: 2014Q1

REPORT INFORMATION
  Report Type: Spontaneous
  Country: US (occurrence: None)
  Receive Date: 20140102
  Receipt Date: 20140102
  Transmission Date: 20141002
  Serious: Yes (Other)
  Sender: FDA-Public Use
  Company Number: None

PATIENT
  Age: 43 Year
  Sex: Male
  Weight: 99.79 kg

DRUGS (1)
  1. IRBESARTAN [Suspect]
     Indication: BLOOD PRESSURE
     Dosage: 1 PILL
     Route: 048
     Dates: start: 20130920, end: 20131229

REACTIONS (3)
  - Drug ineffective [None]
  - Blood pressure increased [None]
  - Product substitution issue [None]
